FAERS Safety Report 15578355 (Version 1)
Quarter: 2018Q4

REPORT INFORMATION
  Report Type: Report from Study
  Country: TW (occurrence: TW)
  Receive Date: 20181102
  Receipt Date: 20181102
  Transmission Date: 20190205
  Serious: Yes (Other)
  Sender: FDA-Public Use
  Company Number: TW-ACCORD-090795

PATIENT
  Age: 48 Year
  Sex: Female

DRUGS (4)
  1. RIFABUTIN. [Interacting]
     Active Substance: RIFABUTIN
     Indication: TUBERCULOSIS
     Route: 048
  2. ISONIAZID. [Interacting]
     Active Substance: ISONIAZID
     Indication: TUBERCULOSIS
  3. ETHAMBUTOL [Interacting]
     Active Substance: ETHAMBUTOL HYDROCHLORIDE
     Indication: TUBERCULOSIS
     Dosage: 800 OR 1200 MG/DAY
     Route: 048
  4. TACROLIMUS. [Suspect]
     Active Substance: TACROLIMUS
     Indication: IMMUNOSUPPRESSION
     Route: 048

REACTIONS (2)
  - Transplant rejection [Unknown]
  - Drug interaction [Unknown]
